FAERS Safety Report 8809844 (Version 1)
Quarter: 2012Q4

REPORT INFORMATION
  Report Type: 
  Country: US (occurrence: US)
  Receive Date: 20120926
  Receipt Date: 20120926
  Transmission Date: 20130627
  Serious: Yes (Hospitalization)
  Sender: FDA-Public Use
  Company Number: US-ELI_LILLY_AND_COMPANY-US201101002798

PATIENT
  Sex: Female

DRUGS (10)
  1. FORTEO [Suspect]
     Indication: OSTEOPOROSIS
     Dosage: 20 ug, qd
     Dates: start: 201010
  2. FORTEO [Suspect]
     Dosage: 20 ug, qd
  3. FORTEO [Suspect]
     Dosage: 20 ug, qd
  4. FORTEO [Suspect]
     Dosage: 20 ug, qd
  5. FORTEO [Suspect]
     Dosage: 20 ug, qd
  6. FORTEO [Suspect]
     Dosage: 20 ug, qd
  7. FORTEO [Suspect]
     Dosage: 20 ug, qd
     Dates: start: 201011
  8. LASIX [Concomitant]
     Indication: FLUID RETENTION
     Dosage: UNK, qd
  9. LASIX [Concomitant]
     Dosage: UNK, bid
  10. POTASSIUM [Concomitant]

REACTIONS (15)
  - Intestinal obstruction [Unknown]
  - Hospitalisation [Unknown]
  - Myalgia [Recovered/Resolved]
  - Myalgia [Unknown]
  - Pain in extremity [Not Recovered/Not Resolved]
  - Oedema peripheral [Recovered/Resolved]
  - Pruritus [Unknown]
  - Limb discomfort [Unknown]
  - Musculoskeletal discomfort [Unknown]
  - General symptom [Unknown]
  - Sleep disorder due to a general medical condition [Unknown]
  - Arthralgia [Unknown]
  - Injection site bruising [Not Recovered/Not Resolved]
  - Muscle spasms [Unknown]
  - Cardiac disorder [Unknown]
